FAERS Safety Report 18188635 (Version 3)
Quarter: 2023Q1

REPORT INFORMATION
  Report Type: Spontaneous
  Country: ES (occurrence: ES)
  Receive Date: 20200824
  Receipt Date: 20230223
  Transmission Date: 20230418
  Serious: Yes (Hospitalization, Other)
  Sender: FDA-Public Use
  Company Number: ES-SUN PHARMACEUTICAL INDUSTRIES LTD-2020R1-258095

PATIENT
  Age: 52 Year
  Sex: Female
  Weight: 43 kg

DRUGS (9)
  1. HYDROXYCHLOROQUINE [Suspect]
     Active Substance: HYDROXYCHLOROQUINE
     Indication: Scleroderma
     Dosage: 200 MILLIGRAM, BID
     Route: 065
  2. HYDROXYCHLOROQUINE [Suspect]
     Active Substance: HYDROXYCHLOROQUINE
     Indication: Mixed connective tissue disease
  3. HYDROXYCHLOROQUINE [Suspect]
     Active Substance: HYDROXYCHLOROQUINE
     Indication: Interstitial lung disease
  4. MYCOPHENOLIC ACID [Suspect]
     Active Substance: MYCOPHENOLIC ACID
     Indication: Interstitial lung disease
     Dosage: 1000 MILLIGRAM, TID
     Route: 065
  5. MYCOPHENOLIC ACID [Suspect]
     Active Substance: MYCOPHENOLIC ACID
     Indication: Mixed connective tissue disease
  6. MYCOPHENOLIC ACID [Suspect]
     Active Substance: MYCOPHENOLIC ACID
     Indication: Scleroderma
  7. PREDNISONE [Suspect]
     Active Substance: PREDNISONE
     Indication: Scleroderma
     Dosage: 5 MILLIGRAM, DAILY
     Route: 065
  8. PREDNISONE [Suspect]
     Active Substance: PREDNISONE
     Indication: Mixed connective tissue disease
  9. PREDNISONE [Suspect]
     Active Substance: PREDNISONE
     Indication: Interstitial lung disease

REACTIONS (2)
  - Cytomegalovirus chorioretinitis [Recovering/Resolving]
  - Leukopenia [Recovering/Resolving]
